FAERS Safety Report 9631467 (Version 1)
Quarter: 2013Q4

REPORT INFORMATION
  Report Type: Spontaneous
  Country: US (occurrence: US)
  Receive Date: 20131018
  Receipt Date: 20131018
  Transmission Date: 20140711
  Serious: Yes (Other)
  Sender: FDA-Public Use
  Company Number: US-TEVA-438906USA

PATIENT
  Age: 30 Year
  Sex: Female
  Weight: 90.8 kg

DRUGS (3)
  1. PARAGARD 380A [Suspect]
     Indication: CONTRACEPTION
     Route: 015
     Dates: start: 20130620, end: 20131007
  2. VALTREX [Concomitant]
  3. PRENATAL VITAMINS [Concomitant]
     Indication: MEDICAL DIET

REACTIONS (1)
  - Device dislocation [Recovered/Resolved]
